FAERS Safety Report 7832412-8 (Version None)
Quarter: 2011Q4

REPORT INFORMATION
  Report Type: 
  Country: None (occurrence: None)
  Receive Date: 20111022
  Receipt Date: 20111010
  Transmission Date: 20120403
  Serious: Yes (Hospitalization, Other)
  Sender: FDA-Public Use
  Company Number: US-BAYER-2011-005937

PATIENT
  Age: 28 Year
  Sex: Female
  Weight: 104.31 kg

DRUGS (5)
  1. YASMIN [Suspect]
     Indication: CONTRACEPTION
     Dosage: UNK
     Dates: start: 20070801, end: 20080101
  2. YASMIN [Suspect]
     Indication: MENSTRUATION IRREGULAR
  3. PROTONIX [Concomitant]
  4. METFORMIN HCL [Concomitant]
  5. VICODIN [Concomitant]

REACTIONS (7)
  - GALLBLADDER NON-FUNCTIONING [None]
  - INJURY [None]
  - ABDOMINAL PAIN [None]
  - EMOTIONAL DISTRESS [None]
  - ANXIETY [None]
  - CHOLECYSTITIS CHRONIC [None]
  - PAIN [None]
